FAERS Safety Report 6425109-2 (Version None)
Quarter: 2009Q4

REPORT INFORMATION
  Report Type: 
  Country: None (occurrence: None)
  Receive Date: 20091103
  Receipt Date: 20091022
  Transmission Date: 20100525
  Serious: Yes (Hospitalization)
  Sender: FDA-Public Use
  Company Number: BE-PFIZER INC-2009287432

PATIENT
  Age: 46 Year
  Sex: Male

DRUGS (6)
  1. SUNITINIB MALATE [Suspect]
     Indication: HEAD AND NECK CANCER
     Dosage: 37.5 MG, 1X/DAY
     Route: 048
     Dates: start: 20090921, end: 20091019
  2. MEDROL [Concomitant]
     Indication: PAIN
     Dosage: 32 MG, 1X/DAY
     Route: 048
     Dates: start: 20091005
  3. DAFALGAN [Concomitant]
     Indication: PAIN
     Dosage: 2 G, 1X/DAY
     Route: 048
     Dates: start: 20090817
  4. TRADONAL [Concomitant]
     Indication: PAIN
     Dosage: 100 MG, 1X/DAY
     Route: 048
     Dates: start: 20091005
  5. PRAZEPAM [Concomitant]
     Indication: ANXIETY
     Dosage: 10 GTT, 1X/DAY
     Route: 048
     Dates: start: 20091005
  6. ZANTAC [Concomitant]
     Indication: PROPHYLAXIS
     Dosage: 300 MG, 1X/DAY
     Route: 048
     Dates: start: 20091005

REACTIONS (1)
  - SEPTIC SHOCK [None]
